FAERS Safety Report 12720830 (Version 1)
Quarter: 2016Q3

REPORT INFORMATION
  Report Type: Other
  Country: US (occurrence: US)
  Receive Date: 20160907
  Receipt Date: 20160907
  Transmission Date: 20161109
  Serious: No
  Sender: FDA-Public Use
  Company Number: US-COL_20614_2015

PATIENT
  Sex: Female

DRUGS (2)
  1. COLGATE TOTAL WHITENING [Suspect]
     Active Substance: SODIUM FLUORIDE\TRICLOSAN
     Dosage: COVERED THE WHOLE HEAD OF THE TOOTHBRUSH/BID OR TID/
     Route: 048
     Dates: start: 201507, end: 2015
  2. COLGATE TOTAL WHITENING [Suspect]
     Active Substance: SODIUM FLUORIDE\TRICLOSAN
     Indication: PRODUCT USED FOR UNKNOWN INDICATION
     Dosage: COVERED THE WHOLE HEAD OF THE TOOTHBRUSH/BID OR TID/
     Route: 048
     Dates: start: 20150826, end: 20150826

REACTIONS (7)
  - Oral discomfort [Recovering/Resolving]
  - Cheilitis [Recovering/Resolving]
  - Oral pain [Recovering/Resolving]
  - Lip pain [Recovering/Resolving]
  - Hypersensitivity [Recovering/Resolving]
  - Lip dry [Recovering/Resolving]
  - Lip swelling [Recovering/Resolving]

NARRATIVE: CASE EVENT DATE: 2015
